FAERS Safety Report 21002367 (Version 24)
Quarter: 2025Q3

REPORT INFORMATION
  Report Type: Spontaneous
  Country: EU (occurrence: EU)
  Receive Date: 20220624
  Receipt Date: 20250929
  Transmission Date: 20251021
  Serious: Yes (Other)
  Sender: JOHNSON AND JOHNSON
  Company Number: None

PATIENT
  Age: 77 Year
  Sex: Male
  Weight: 77 kg

DRUGS (479)
  1. XARELTO [Suspect]
     Active Substance: RIVAROXABAN
     Indication: Product used for unknown indication
     Route: 048
  2. XARELTO [Suspect]
     Active Substance: RIVAROXABAN
     Indication: Product used for unknown indication
     Route: 048
  3. XARELTO [Suspect]
     Active Substance: RIVAROXABAN
     Indication: Product used for unknown indication
     Route: 048
  4. XARELTO [Suspect]
     Active Substance: RIVAROXABAN
     Route: 048
  5. XARELTO [Suspect]
     Active Substance: RIVAROXABAN
     Route: 048
  6. XARELTO [Suspect]
     Active Substance: RIVAROXABAN
     Route: 048
  7. XARELTO [Suspect]
     Active Substance: RIVAROXABAN
     Route: 048
  8. XARELTO [Suspect]
     Active Substance: RIVAROXABAN
     Route: 048
  9. XARELTO [Suspect]
     Active Substance: RIVAROXABAN
     Route: 048
  10. XARELTO [Suspect]
     Active Substance: RIVAROXABAN
     Route: 048
  11. XARELTO [Suspect]
     Active Substance: RIVAROXABAN
     Route: 048
  12. XARELTO [Suspect]
     Active Substance: RIVAROXABAN
     Route: 048
  13. XARELTO [Suspect]
     Active Substance: RIVAROXABAN
     Route: 048
  14. XARELTO [Suspect]
     Active Substance: RIVAROXABAN
     Route: 048
  15. XARELTO [Suspect]
     Active Substance: RIVAROXABAN
     Route: 048
  16. XARELTO [Suspect]
     Active Substance: RIVAROXABAN
     Route: 048
  17. XARELTO [Suspect]
     Active Substance: RIVAROXABAN
     Route: 048
  18. XARELTO [Suspect]
     Active Substance: RIVAROXABAN
     Route: 048
  19. XARELTO [Suspect]
     Active Substance: RIVAROXABAN
     Route: 048
  20. XARELTO [Suspect]
     Active Substance: RIVAROXABAN
     Route: 048
  21. XARELTO [Suspect]
     Active Substance: RIVAROXABAN
     Route: 048
  22. XARELTO [Suspect]
     Active Substance: RIVAROXABAN
     Route: 048
  23. MOMETASONE FUROATE [Suspect]
     Active Substance: MOMETASONE FUROATE
     Indication: Product use in unapproved indication
     Route: 065
  24. MOMETASONE FUROATE [Suspect]
     Active Substance: MOMETASONE FUROATE
     Indication: Product used for unknown indication
     Route: 065
  25. MOMETASONE FUROATE [Suspect]
     Active Substance: MOMETASONE FUROATE
     Indication: Product used for unknown indication
     Dosage: 2 PUFFS, BID
     Route: 065
  26. MOMETASONE FUROATE [Suspect]
     Active Substance: MOMETASONE FUROATE
     Indication: Product used for unknown indication
     Dosage: 2 PUFFS, BID
     Route: 065
  27. MOMETASONE FUROATE [Suspect]
     Active Substance: MOMETASONE FUROATE
     Indication: Product used for unknown indication
     Route: 065
  28. MOMETASONE FUROATE [Suspect]
     Active Substance: MOMETASONE FUROATE
     Route: 065
  29. MOMETASONE FUROATE [Suspect]
     Active Substance: MOMETASONE FUROATE
     Route: 065
  30. MOMETASONE FUROATE [Suspect]
     Active Substance: MOMETASONE FUROATE
     Route: 065
  31. MOMETASONE FUROATE [Suspect]
     Active Substance: MOMETASONE FUROATE
     Route: 065
  32. MOMETASONE FUROATE [Suspect]
     Active Substance: MOMETASONE FUROATE
  33. MOMETASONE FUROATE [Suspect]
     Active Substance: MOMETASONE FUROATE
     Route: 065
  34. MOMETASONE FUROATE [Suspect]
     Active Substance: MOMETASONE FUROATE
     Route: 065
  35. MOMETASONE FUROATE [Suspect]
     Active Substance: MOMETASONE FUROATE
     Route: 065
  36. MOMETASONE FUROATE [Suspect]
     Active Substance: MOMETASONE FUROATE
     Route: 065
  37. MOMETASONE FUROATE [Suspect]
     Active Substance: MOMETASONE FUROATE
     Route: 065
  38. MOMETASONE FUROATE [Suspect]
     Active Substance: MOMETASONE FUROATE
     Route: 065
  39. MOMETASONE FUROATE [Suspect]
     Active Substance: MOMETASONE FUROATE
     Route: 065
  40. MOMETASONE FUROATE [Suspect]
     Active Substance: MOMETASONE FUROATE
     Route: 065
  41. MOMETASONE FUROATE [Suspect]
     Active Substance: MOMETASONE FUROATE
     Route: 065
  42. MOMETASONE FUROATE [Suspect]
     Active Substance: MOMETASONE FUROATE
     Route: 065
  43. MOMETASONE FUROATE [Suspect]
     Active Substance: MOMETASONE FUROATE
  44. MOMETASONE FUROATE [Suspect]
     Active Substance: MOMETASONE FUROATE
  45. MOMETASONE FUROATE [Suspect]
     Active Substance: MOMETASONE FUROATE
  46. MOMETASONE FUROATE [Suspect]
     Active Substance: MOMETASONE FUROATE
  47. MOMETASONE FUROATE [Suspect]
     Active Substance: MOMETASONE FUROATE
     Dosage: 4 DOSAGE FORM, QD, 2 DOSAGE FORM (BID)
     Route: 065
  48. CALCIUM PANTOTHENATE [Suspect]
     Active Substance: CALCIUM PANTOTHENATE
     Indication: Product used for unknown indication
     Dosage: 1 DF, QD, 2 PUFFS
     Route: 065
  49. CALCIUM PANTOTHENATE [Suspect]
     Active Substance: CALCIUM PANTOTHENATE
     Dosage: 1 DF, TID, 3-2-3
     Route: 065
  50. CALCIUM PANTOTHENATE [Suspect]
     Active Substance: CALCIUM PANTOTHENATE
     Dosage: 1 DF, TID, 2-0-1
     Route: 065
  51. CALCIUM PANTOTHENATE [Suspect]
     Active Substance: CALCIUM PANTOTHENATE
     Dosage: 1 DF, TID, 2-0-1
     Route: 065
  52. CALCIUM PANTOTHENATE [Suspect]
     Active Substance: CALCIUM PANTOTHENATE
     Route: 065
  53. ASPIRIN [Suspect]
     Active Substance: ASPIRIN
     Indication: Product used for unknown indication
     Route: 065
  54. ASPIRIN [Suspect]
     Active Substance: ASPIRIN
     Indication: Product used for unknown indication
  55. ASPIRIN [Suspect]
     Active Substance: ASPIRIN
     Indication: Product used for unknown indication
     Route: 065
  56. DICLOFENAC DIETHYLAMINE [Suspect]
     Active Substance: DICLOFENAC DIETHYLAMINE
     Indication: Product used for unknown indication
     Route: 065
  57. DICLOFENAC DIETHYLAMINE [Suspect]
     Active Substance: DICLOFENAC DIETHYLAMINE
  58. DICLOFENAC DIETHYLAMINE [Suspect]
     Active Substance: DICLOFENAC DIETHYLAMINE
     Route: 065
  59. ALBUTEROL SULFATE [Suspect]
     Active Substance: ALBUTEROL SULFATE
     Indication: Secretion discharge
     Route: 055
     Dates: start: 2018, end: 2018
  60. ALBUTEROL SULFATE [Suspect]
     Active Substance: ALBUTEROL SULFATE
     Indication: Dysphonia
  61. ALBUTEROL SULFATE [Suspect]
     Active Substance: ALBUTEROL SULFATE
     Indication: Pneumothorax
     Route: 065
  62. ALBUTEROL SULFATE [Suspect]
     Active Substance: ALBUTEROL SULFATE
     Indication: Cough
  63. ALBUTEROL SULFATE [Suspect]
     Active Substance: ALBUTEROL SULFATE
     Indication: Dyspnoea
  64. ALBUTEROL SULFATE [Suspect]
     Active Substance: ALBUTEROL SULFATE
     Indication: Chest discomfort
  65. ALBUTEROL SULFATE [Suspect]
     Active Substance: ALBUTEROL SULFATE
     Indication: Productive cough
  66. ALBUTEROL SULFATE [Suspect]
     Active Substance: ALBUTEROL SULFATE
     Indication: Nasopharyngitis
  67. ALBUTEROL SULFATE [Suspect]
     Active Substance: ALBUTEROL SULFATE
     Indication: Pneumothorax
  68. ALBUTEROL SULFATE [Suspect]
     Active Substance: ALBUTEROL SULFATE
     Indication: Secretion discharge
  69. ALBUTEROL SULFATE [Suspect]
     Active Substance: ALBUTEROL SULFATE
     Indication: Product used for unknown indication
  70. ALBUTEROL SULFATE [Suspect]
     Active Substance: ALBUTEROL SULFATE
     Indication: Dysphonia
  71. ALBUTEROL SULFATE [Suspect]
     Active Substance: ALBUTEROL SULFATE
     Indication: Secretion discharge
  72. ALBUTEROL SULFATE [Suspect]
     Active Substance: ALBUTEROL SULFATE
     Indication: Pneumothorax
  73. SOAP [Suspect]
     Active Substance: SOAP
     Indication: Bronchitis
  74. SOAP [Suspect]
     Active Substance: SOAP
     Indication: Nasopharyngitis
     Dosage: UNK, Q3WK
  75. SOAP [Suspect]
     Active Substance: SOAP
     Indication: Asthma
     Dosage: 10 GTT DROPS
  76. SOAP [Suspect]
     Active Substance: SOAP
     Indication: Cough
     Dosage: UNK, TID
  77. SOAP [Suspect]
     Active Substance: SOAP
     Indication: Product used for unknown indication
     Dosage: UNK, QD
  78. SOAP [Suspect]
     Active Substance: SOAP
     Indication: Dysphonia
     Route: 065
  79. SOAP [Suspect]
     Active Substance: SOAP
     Indication: Dyspnoea
     Dosage: 10 GTT DROPS, QD
  80. SOAP [Suspect]
     Active Substance: SOAP
     Indication: Pneumothorax
  81. SOAP [Suspect]
     Active Substance: SOAP
     Indication: Secretion discharge
  82. SOAP [Suspect]
     Active Substance: SOAP
     Indication: Nasopharyngitis
     Route: 065
  83. SOAP [Suspect]
     Active Substance: SOAP
  84. SOAP [Suspect]
     Active Substance: SOAP
     Route: 065
  85. ERGOCALCIFEROL [Suspect]
     Active Substance: ERGOCALCIFEROL
     Indication: Product used for unknown indication
     Dosage: UNK, OW
  86. ERGOCALCIFEROL [Suspect]
     Active Substance: ERGOCALCIFEROL
     Dosage: 20000 INTERNATIONAL UNIT, WEEKLY (1/W)
  87. CALCIUM CARBONATE [Suspect]
     Active Substance: CALCIUM CARBONATE
     Indication: Product used for unknown indication
  88. CALCIUM CARBONATE [Suspect]
     Active Substance: CALCIUM CARBONATE
     Indication: Product used for unknown indication
  89. CALCIUM CARBONATE [Suspect]
     Active Substance: CALCIUM CARBONATE
  90. CALCIUM CARBONATE [Suspect]
     Active Substance: CALCIUM CARBONATE
  91. CALCIUM CARBONATE [Suspect]
     Active Substance: CALCIUM CARBONATE
     Route: 065
  92. CALCIUM CARBONATE [Suspect]
     Active Substance: CALCIUM CARBONATE
     Dosage: UNK ,500 MG BID (1)
     Route: 065
  93. CALCIUM CARBONATE [Suspect]
     Active Substance: CALCIUM CARBONATE
  94. CALCIUM CARBONATE [Suspect]
     Active Substance: CALCIUM CARBONATE
     Dosage: 500 MG, BID
  95. ROSUVASTATIN CALCIUM [Suspect]
     Active Substance: ROSUVASTATIN CALCIUM
     Indication: Product used for unknown indication
  96. ROSUVASTATIN CALCIUM [Suspect]
     Active Substance: ROSUVASTATIN CALCIUM
  97. ROSUVASTATIN CALCIUM [Suspect]
     Active Substance: ROSUVASTATIN CALCIUM
     Route: 065
  98. ROSUVASTATIN CALCIUM [Suspect]
     Active Substance: ROSUVASTATIN CALCIUM
  99. CIALIS [Suspect]
     Active Substance: TADALAFIL
     Indication: Product used for unknown indication
     Route: 065
  100. CIALIS [Suspect]
     Active Substance: TADALAFIL
  101. CIALIS [Suspect]
     Active Substance: TADALAFIL
     Route: 065
  102. MAGNESIUM OROTATE [Suspect]
     Active Substance: MAGNESIUM OROTATE
     Indication: Product used for unknown indication
     Route: 065
  103. MAGNESIUM OROTATE [Suspect]
     Active Substance: MAGNESIUM OROTATE
     Indication: Product used for unknown indication
     Dosage: UNK UNK, DAILY (TID (3-2-3))  TID
     Route: 065
  104. MAGNESIUM OROTATE [Suspect]
     Active Substance: MAGNESIUM OROTATE
  105. MAGNESIUM OROTATE [Suspect]
     Active Substance: MAGNESIUM OROTATE
  106. MAGNESIUM OROTATE [Suspect]
     Active Substance: MAGNESIUM OROTATE
     Route: 065
  107. MAGNESIUM OROTATE [Suspect]
     Active Substance: MAGNESIUM OROTATE
     Route: 065
  108. MAGNESIUM OROTATE [Suspect]
     Active Substance: MAGNESIUM OROTATE
     Route: 065
  109. MAGNESIUM OROTATE [Suspect]
     Active Substance: MAGNESIUM OROTATE
  110. BIOTIN [Suspect]
     Active Substance: BIOTIN
     Indication: Product used for unknown indication
     Dosage: 1 DF, QD
  111. BIOTIN [Suspect]
     Active Substance: BIOTIN
     Indication: Dysphonia
     Dosage: 1 DOSAGE FORM, QD
  112. BIOTIN [Suspect]
     Active Substance: BIOTIN
     Indication: Secretion discharge
  113. BIOTIN [Suspect]
     Active Substance: BIOTIN
     Indication: Chest discomfort
  114. BIOTIN [Suspect]
     Active Substance: BIOTIN
     Indication: Nasopharyngitis
  115. BIOTIN [Suspect]
     Active Substance: BIOTIN
     Indication: Cough
     Dosage: 10 MILLIGRAM, QD
  116. BIOTIN [Suspect]
     Active Substance: BIOTIN
     Indication: Bronchitis
  117. BIOTIN [Suspect]
     Active Substance: BIOTIN
     Indication: Dyspnoea
  118. BIOTIN [Suspect]
     Active Substance: BIOTIN
     Indication: Asthma
  119. BIOTIN [Suspect]
     Active Substance: BIOTIN
     Indication: Pneumothorax
  120. BIOTIN [Suspect]
     Active Substance: BIOTIN
  121. BIOTIN [Suspect]
     Active Substance: BIOTIN
  122. BIOTIN [Suspect]
     Active Substance: BIOTIN
  123. BIOTIN [Suspect]
     Active Substance: BIOTIN
  124. BIOTIN [Suspect]
     Active Substance: BIOTIN
  125. BIOTIN [Suspect]
     Active Substance: BIOTIN
  126. BIOTIN [Suspect]
     Active Substance: BIOTIN
  127. BIOTIN [Suspect]
     Active Substance: BIOTIN
     Dosage: 2 DF, BID
  128. BIOTIN [Suspect]
     Active Substance: BIOTIN
     Dosage: 1 DF, TID
  129. BIOTIN [Suspect]
     Active Substance: BIOTIN
     Dosage: 1 DF, OW
  130. BIOTIN [Suspect]
     Active Substance: BIOTIN
  131. BIOTIN [Suspect]
     Active Substance: BIOTIN
  132. BIOTIN [Suspect]
     Active Substance: BIOTIN
  133. BIOTIN [Suspect]
     Active Substance: BIOTIN
  134. BIOTIN [Suspect]
     Active Substance: BIOTIN
  135. BIOTIN [Suspect]
     Active Substance: BIOTIN
  136. BIOTIN [Suspect]
     Active Substance: BIOTIN
  137. BIOTIN [Suspect]
     Active Substance: BIOTIN
  138. BIOTIN [Suspect]
     Active Substance: BIOTIN
  139. BIOTIN [Suspect]
     Active Substance: BIOTIN
  140. BIOTIN [Suspect]
     Active Substance: BIOTIN
  141. BIOTIN [Suspect]
     Active Substance: BIOTIN
  142. BIOTIN [Suspect]
     Active Substance: BIOTIN
  143. BIOTIN [Suspect]
     Active Substance: BIOTIN
  144. BIOTIN [Suspect]
     Active Substance: BIOTIN
  145. BIOTIN [Suspect]
     Active Substance: BIOTIN
  146. BIOTIN [Suspect]
     Active Substance: BIOTIN
  147. BIOTIN [Suspect]
     Active Substance: BIOTIN
     Dosage: 1 DOSAGE FORM, QD
     Route: 065
  148. BIOTIN [Suspect]
     Active Substance: BIOTIN
  149. COLESEVELAM [Suspect]
     Active Substance: COLESEVELAM
     Indication: Product used for unknown indication
  150. COLESEVELAM [Suspect]
     Active Substance: COLESEVELAM
     Indication: Product used for unknown indication
  151. COLESEVELAM [Suspect]
     Active Substance: COLESEVELAM
     Route: 065
  152. COLESEVELAM [Suspect]
     Active Substance: COLESEVELAM
  153. .ALPHA.-TOCOPHEROL ACETATE [Suspect]
     Active Substance: .ALPHA.-TOCOPHEROL ACETATE
     Indication: Product used for unknown indication
  154. .ALPHA.-TOCOPHEROL ACETATE [Suspect]
     Active Substance: .ALPHA.-TOCOPHEROL ACETATE
  155. .ALPHA.-TOCOPHEROL ACETATE [Suspect]
     Active Substance: .ALPHA.-TOCOPHEROL ACETATE
     Dosage: 2000 IU, WE (2000 IU, QW)
  156. .ALPHA.-TOCOPHEROL ACETATE [Suspect]
     Active Substance: .ALPHA.-TOCOPHEROL ACETATE
     Dosage: 1 DF, WE (1 DF, QW)
  157. HERBALS [Suspect]
     Active Substance: HERBALS
     Indication: Product used for unknown indication
  158. HERBALS [Suspect]
     Active Substance: HERBALS
  159. HERBALS [Suspect]
     Active Substance: HERBALS
     Route: 065
  160. HERBALS [Suspect]
     Active Substance: HERBALS
  161. AMBROXOL HYDROCHLORIDE [Suspect]
     Active Substance: AMBROXOL HYDROCHLORIDE
     Indication: Product used for unknown indication
  162. TAMSULOSIN [Suspect]
     Active Substance: TAMSULOSIN
     Indication: Product used for unknown indication
     Route: 065
  163. TAMSULOSIN [Suspect]
     Active Substance: TAMSULOSIN
  164. TAMSULOSIN [Suspect]
     Active Substance: TAMSULOSIN
     Route: 065
  165. ERGOCALCIFEROL [Suspect]
     Active Substance: ERGOCALCIFEROL
     Indication: Product used for unknown indication
     Dosage: UNK, OW
     Route: 065
  166. ERGOCALCIFEROL [Suspect]
     Active Substance: ERGOCALCIFEROL
     Indication: Product used for unknown indication
     Dosage: ROUTE: UNKNOWN
     Route: 065
  167. ERGOCALCIFEROL [Suspect]
     Active Substance: ERGOCALCIFEROL
     Dosage: 20000 IU, OW
     Route: 065
  168. ERGOCALCIFEROL [Suspect]
     Active Substance: ERGOCALCIFEROL
  169. VITAMIN E [Suspect]
     Active Substance: .ALPHA.-TOCOPHEROL
     Indication: Product used for unknown indication
     Dosage: 2000 UNK  [IU] (INTERNATIONAL UNIT)
  170. VITAMIN E [Suspect]
     Active Substance: .ALPHA.-TOCOPHEROL
     Dosage: UNK, Q2WK
     Route: 065
  171. VITAMIN E [Suspect]
     Active Substance: .ALPHA.-TOCOPHEROL
     Dosage: UNK UNK, UNKNOWN Q2W20000 UNK, QW
     Route: 065
  172. AMBROXOL HYDROCHLORIDE [Suspect]
     Active Substance: AMBROXOL HYDROCHLORIDE
     Indication: Product used for unknown indication
     Route: 045
  173. AMBROXOL HYDROCHLORIDE [Suspect]
     Active Substance: AMBROXOL HYDROCHLORIDE
  174. AMBROXOL HYDROCHLORIDE [Suspect]
     Active Substance: AMBROXOL HYDROCHLORIDE
     Route: 065
  175. AMBROXOL HYDROCHLORIDE [Suspect]
     Active Substance: AMBROXOL HYDROCHLORIDE
     Route: 055
  176. AMBROXOL HYDROCHLORIDE [Suspect]
     Active Substance: AMBROXOL HYDROCHLORIDE
  177. PRALUENT [Suspect]
     Active Substance: ALIROCUMAB
     Indication: Product used for unknown indication
     Route: 065
  178. PRALUENT [Suspect]
     Active Substance: ALIROCUMAB
     Indication: Product used for unknown indication
  179. PRALUENT [Suspect]
     Active Substance: ALIROCUMAB
     Route: 065
  180. PRALUENT [Suspect]
     Active Substance: ALIROCUMAB
     Route: 065
  181. PRALUENT [Suspect]
     Active Substance: ALIROCUMAB
  182. COLESEVELAM HYDROCHLORIDE [Suspect]
     Active Substance: COLESEVELAM HYDROCHLORIDE
     Indication: Product used for unknown indication
  183. MAGNESIUM ASPARTATE [Suspect]
     Active Substance: MAGNESIUM ASPARTATE
     Indication: Product used for unknown indication
     Dosage: 500 IU, BID
  184. MAGNESIUM ASPARTATE [Suspect]
     Active Substance: MAGNESIUM ASPARTATE
     Route: 065
  185. MAGNESIUM ASPARTATE [Suspect]
     Active Substance: MAGNESIUM ASPARTATE
  186. MAGNESIUM ASPARTATE [Suspect]
     Active Substance: MAGNESIUM ASPARTATE
     Dosage: 1000 MG, BID (INTERVAL: 1 DAY) (UNK, STRENGTH: 500)
  187. MAGNESIUM ASPARTATE [Suspect]
     Active Substance: MAGNESIUM ASPARTATE
     Dosage: ROUTE: UNKNOWN
     Route: 065
  188. ASPIRIN CALCIUM [Suspect]
     Active Substance: ASPIRIN CALCIUM
     Indication: Product used for unknown indication
     Dosage: UNK, BID
  189. ASPIRIN CALCIUM [Suspect]
     Active Substance: ASPIRIN CALCIUM
     Indication: Product used for unknown indication
  190. ASPIRIN CALCIUM [Suspect]
     Active Substance: ASPIRIN CALCIUM
     Indication: Product used for unknown indication
     Route: 065
  191. ASPIRIN CALCIUM [Suspect]
     Active Substance: ASPIRIN CALCIUM
     Route: 065
  192. ASPIRIN CALCIUM [Suspect]
     Active Substance: ASPIRIN CALCIUM
  193. ASPIRIN CALCIUM [Suspect]
     Active Substance: ASPIRIN CALCIUM
  194. DICLOFENAC [Suspect]
     Active Substance: DICLOFENAC
     Indication: Product used for unknown indication
     Route: 065
  195. DICLOFENAC [Suspect]
     Active Substance: DICLOFENAC
     Indication: Product used for unknown indication
  196. DICLOFENAC [Suspect]
     Active Substance: DICLOFENAC
     Route: 065
  197. DICLOFENAC [Suspect]
     Active Substance: DICLOFENAC
  198. CLOPIDOGREL [Suspect]
     Active Substance: CLOPIDOGREL BISULFATE
     Indication: Product used for unknown indication
     Dosage: UNK, BID
     Route: 065
     Dates: start: 20201210
  199. CLOPIDOGREL [Suspect]
     Active Substance: CLOPIDOGREL BISULFATE
  200. CLOPIDOGREL [Suspect]
     Active Substance: CLOPIDOGREL BISULFATE
     Route: 065
  201. GINKGO [Suspect]
     Active Substance: GINKGO
     Indication: Product used for unknown indication
     Dosage: UNK, BID
     Route: 065
  202. GINKGO [Suspect]
     Active Substance: GINKGO
     Route: 065
  203. GINKGO [Suspect]
     Active Substance: GINKGO
  204. GINKGO [Suspect]
     Active Substance: GINKGO
     Route: 065
  205. GINKGO [Suspect]
     Active Substance: GINKGO
     Route: 065
  206. GINKGO [Suspect]
     Active Substance: GINKGO
  207. MOMETASONE FUROATE [Suspect]
     Active Substance: MOMETASONE FUROATE
     Indication: Product used for unknown indication
     Route: 065
  208. MOMETASONE FUROATE [Suspect]
     Active Substance: MOMETASONE FUROATE
     Route: 065
  209. MOMETASONE FUROATE [Suspect]
     Active Substance: MOMETASONE FUROATE
     Dosage: 4 DF, BID
     Route: 065
  210. MOMETASONE FUROATE [Suspect]
     Active Substance: MOMETASONE FUROATE
     Dosage: 4 DF, QD, (2 DOSAGE FORM, BID (2 PUFF(S), BID 1-0-1))
  211. MOMETASONE FUROATE [Suspect]
     Active Substance: MOMETASONE FUROATE
     Dosage: 2 DOSAGE FORM, BID
     Route: 065
  212. MOMETASONE FUROATE [Suspect]
     Active Substance: MOMETASONE FUROATE
     Route: 065
  213. MOMETASONE FUROATE [Suspect]
     Active Substance: MOMETASONE FUROATE
     Dosage: 2 DOSAGE FORM, BID (2 PUFF(S), BID 1-0-1)
     Route: 065
  214. MOMETASONE FUROATE [Suspect]
     Active Substance: MOMETASONE FUROATE
     Dosage: 2 DOSAGE FORM, DAILY(1 IN 0.5 DAY)
     Route: 065
  215. MOMETASONE FUROATE [Suspect]
     Active Substance: MOMETASONE FUROATE
     Dosage: 2 DF, QD,(2 DOSAGE FORM, DAILY(1 IN 0.5 DAY))
  216. MOMETASONE FUROATE [Suspect]
     Active Substance: MOMETASONE FUROATE
  217. MOMETASONE FUROATE [Suspect]
     Active Substance: MOMETASONE FUROATE
  218. MOMETASONE FUROATE [Suspect]
     Active Substance: MOMETASONE FUROATE
  219. TADALAFIL [Suspect]
     Active Substance: TADALAFIL
     Indication: Product used for unknown indication
  220. TADALAFIL [Suspect]
     Active Substance: TADALAFIL
     Indication: Product used for unknown indication
     Route: 065
  221. TADALAFIL [Suspect]
     Active Substance: TADALAFIL
  222. FLUTICASONE PROPIONATE\SALMETEROL XINAFOATE [Suspect]
     Active Substance: FLUTICASONE PROPIONATE\SALMETEROL XINAFOATE
     Indication: Secretion discharge
     Route: 045
     Dates: end: 2018
  223. FLUTICASONE PROPIONATE\SALMETEROL XINAFOATE [Suspect]
     Active Substance: FLUTICASONE PROPIONATE\SALMETEROL XINAFOATE
     Indication: Pneumothorax
     Route: 055
     Dates: start: 2018
  224. FLUTICASONE PROPIONATE\SALMETEROL XINAFOATE [Suspect]
     Active Substance: FLUTICASONE PROPIONATE\SALMETEROL XINAFOATE
     Indication: Pneumothorax
  225. FLUTICASONE PROPIONATE\SALMETEROL XINAFOATE [Suspect]
     Active Substance: FLUTICASONE PROPIONATE\SALMETEROL XINAFOATE
     Indication: Dysphonia
  226. FLUTICASONE PROPIONATE\SALMETEROL XINAFOATE [Suspect]
     Active Substance: FLUTICASONE PROPIONATE\SALMETEROL XINAFOATE
     Indication: Dyspnoea
  227. FLUTICASONE PROPIONATE\SALMETEROL XINAFOATE [Suspect]
     Active Substance: FLUTICASONE PROPIONATE\SALMETEROL XINAFOATE
     Indication: Nasopharyngitis
  228. ATROVENT [Suspect]
     Active Substance: IPRATROPIUM BROMIDE
     Indication: Nasopharyngitis
     Route: 055
     Dates: start: 2018, end: 2018
  229. ATROVENT [Suspect]
     Active Substance: IPRATROPIUM BROMIDE
     Indication: Secretion discharge
     Route: 065
  230. ATROVENT [Suspect]
     Active Substance: IPRATROPIUM BROMIDE
     Indication: Cough
  231. ATROVENT [Suspect]
     Active Substance: IPRATROPIUM BROMIDE
     Indication: Chest discomfort
  232. ATROVENT [Suspect]
     Active Substance: IPRATROPIUM BROMIDE
     Indication: Dyspnoea
  233. ATROVENT [Suspect]
     Active Substance: IPRATROPIUM BROMIDE
     Indication: Pneumothorax
  234. ATROVENT [Suspect]
     Active Substance: IPRATROPIUM BROMIDE
     Indication: Nasopharyngitis
  235. ATROVENT [Suspect]
     Active Substance: IPRATROPIUM BROMIDE
     Indication: Dysphonia
  236. ATROVENT [Suspect]
     Active Substance: IPRATROPIUM BROMIDE
     Indication: Secretion discharge
  237. ATROVENT [Suspect]
     Active Substance: IPRATROPIUM BROMIDE
     Indication: Chest discomfort
  238. ATROVENT [Suspect]
     Active Substance: IPRATROPIUM BROMIDE
     Indication: Pneumothorax
  239. ATROVENT [Suspect]
     Active Substance: IPRATROPIUM BROMIDE
     Indication: Secretion discharge
  240. ATROVENT [Suspect]
     Active Substance: IPRATROPIUM BROMIDE
     Indication: Chest discomfort
  241. CALCIUM PANTOTHENATE [Suspect]
     Active Substance: CALCIUM PANTOTHENATE
     Indication: Product used for unknown indication
  242. CALCIUM PANTOTHENATE [Suspect]
     Active Substance: CALCIUM PANTOTHENATE
     Route: 065
  243. CALCIUM PANTOTHENATE [Suspect]
     Active Substance: CALCIUM PANTOTHENATE
     Route: 065
  244. CALCIUM PANTOTHENATE [Suspect]
     Active Substance: CALCIUM PANTOTHENATE
  245. TOCOPHEROL [Suspect]
     Active Substance: TOCOPHEROL
     Indication: Product used for unknown indication
  246. TOCOPHEROL [Suspect]
     Active Substance: TOCOPHEROL
  247. TOCOPHEROL [Suspect]
     Active Substance: TOCOPHEROL
     Route: 065
  248. TOCOPHEROL [Suspect]
     Active Substance: TOCOPHEROL
  249. TOCOPHEROL [Suspect]
     Active Substance: TOCOPHEROL
     Dosage: 20000 IU, WE (UNK UNK, UNKNOWN Q2W20000 UNK, QW)
  250. TOCOPHEROL [Suspect]
     Active Substance: TOCOPHEROL
  251. HERBALS\PHENYL SALICYLATE [Suspect]
     Active Substance: HERBALS\PHENYL SALICYLATE
     Indication: Bronchitis
  252. HERBALS\PHENYL SALICYLATE [Suspect]
     Active Substance: HERBALS\PHENYL SALICYLATE
     Indication: Asthma
     Dosage: 10 GTT, QID
  253. HERBALS\PHENYL SALICYLATE [Suspect]
     Active Substance: HERBALS\PHENYL SALICYLATE
     Route: 065
  254. HERBALS\PHENYL SALICYLATE [Suspect]
     Active Substance: HERBALS\PHENYL SALICYLATE
     Dosage: 10 GTT DROPS, QD
  255. HERBALS\PHENYL SALICYLATE [Suspect]
     Active Substance: HERBALS\PHENYL SALICYLATE
  256. MOMETASONE [Suspect]
     Active Substance: MOMETASONE
     Indication: Product used for unknown indication
     Route: 065
  257. MOMETASONE [Suspect]
     Active Substance: MOMETASONE
     Route: 065
  258. MOMETASONE [Suspect]
     Active Substance: MOMETASONE
     Route: 065
  259. GINKGO [Suspect]
     Active Substance: GINKGO
     Indication: Product used for unknown indication
     Dosage: 1000 MG, BID
     Route: 065
  260. CALCIUM [Suspect]
     Active Substance: CALCIUM
     Indication: Product used for unknown indication
     Route: 065
  261. CALCIUM [Suspect]
     Active Substance: CALCIUM
     Indication: Product used for unknown indication
     Dosage: 500 MG, BID
  262. CALCIUM [Suspect]
     Active Substance: CALCIUM
  263. CALCIUM [Suspect]
     Active Substance: CALCIUM
     Dosage: UNK UNK, UNKNOWN BID (STRENGTH: 500) BID (1-0-1)
     Route: 065
  264. CALCIUM [Suspect]
     Active Substance: CALCIUM
  265. CALCIUM [Suspect]
     Active Substance: CALCIUM
  266. OLMESARTAN MEDOXOMIL [Suspect]
     Active Substance: OLMESARTAN MEDOXOMIL
     Indication: Product used for unknown indication
  267. OLMESARTAN MEDOXOMIL [Suspect]
     Active Substance: OLMESARTAN MEDOXOMIL
     Route: 065
  268. OLMESARTAN MEDOXOMIL [Suspect]
     Active Substance: OLMESARTAN MEDOXOMIL
     Route: 065
  269. OLMESARTAN MEDOXOMIL [Suspect]
     Active Substance: OLMESARTAN MEDOXOMIL
     Dosage: 500 IU, BID
  270. OLMESARTAN MEDOXOMIL [Suspect]
     Active Substance: OLMESARTAN MEDOXOMIL
  271. ALBUTEROL [Suspect]
     Active Substance: ALBUTEROL
     Indication: Cough
     Route: 055
     Dates: start: 2018, end: 2018
  272. ALBUTEROL [Suspect]
     Active Substance: ALBUTEROL
     Indication: Dyspnoea
  273. ALBUTEROL [Suspect]
     Active Substance: ALBUTEROL
     Indication: Dysphonia
     Route: 065
  274. ALBUTEROL [Suspect]
     Active Substance: ALBUTEROL
     Indication: Nasopharyngitis
  275. ALBUTEROL [Suspect]
     Active Substance: ALBUTEROL
     Indication: Secretion discharge
  276. ALBUTEROL [Suspect]
     Active Substance: ALBUTEROL
     Indication: Secretion discharge
  277. CRESTOR [Suspect]
     Active Substance: ROSUVASTATIN CALCIUM
     Indication: Product used for unknown indication
     Route: 065
  278. CRESTOR [Suspect]
     Active Substance: ROSUVASTATIN CALCIUM
     Indication: Product used for unknown indication
  279. CRESTOR [Suspect]
     Active Substance: ROSUVASTATIN CALCIUM
     Route: 065
  280. CRESTOR [Suspect]
     Active Substance: ROSUVASTATIN CALCIUM
  281. MAGNESIUM ASPARTATE\POTASSIUM ASPARTATE [Suspect]
     Active Substance: MAGNESIUM ASPARTATE\POTASSIUM ASPARTATE
     Indication: Product used for unknown indication
  282. MAGNESIUM ASPARTATE\POTASSIUM ASPARTATE [Suspect]
     Active Substance: MAGNESIUM ASPARTATE\POTASSIUM ASPARTATE
     Indication: Product used for unknown indication
  283. MAGNESIUM ASPARTATE\POTASSIUM ASPARTATE [Suspect]
     Active Substance: MAGNESIUM ASPARTATE\POTASSIUM ASPARTATE
     Indication: Product used for unknown indication
     Route: 065
  284. MAGNESIUM ASPARTATE\POTASSIUM ASPARTATE [Suspect]
     Active Substance: MAGNESIUM ASPARTATE\POTASSIUM ASPARTATE
  285. MAGNESIUM ASPARTATE\POTASSIUM ASPARTATE [Suspect]
     Active Substance: MAGNESIUM ASPARTATE\POTASSIUM ASPARTATE
  286. FLUTICASONE PROPIONATE\SALMETEROL XINAFOATE [Suspect]
     Active Substance: FLUTICASONE PROPIONATE\SALMETEROL XINAFOATE
     Indication: Dyspnoea
     Route: 055
     Dates: start: 2018, end: 2018
  287. FLUTICASONE PROPIONATE\SALMETEROL XINAFOATE [Suspect]
     Active Substance: FLUTICASONE PROPIONATE\SALMETEROL XINAFOATE
     Indication: Secretion discharge
  288. FLUTICASONE PROPIONATE\SALMETEROL XINAFOATE [Suspect]
     Active Substance: FLUTICASONE PROPIONATE\SALMETEROL XINAFOATE
     Indication: Dysphonia
     Route: 065
  289. FLUTICASONE PROPIONATE\SALMETEROL XINAFOATE [Suspect]
     Active Substance: FLUTICASONE PROPIONATE\SALMETEROL XINAFOATE
     Indication: Pneumothorax
  290. FLUTICASONE PROPIONATE\SALMETEROL XINAFOATE [Suspect]
     Active Substance: FLUTICASONE PROPIONATE\SALMETEROL XINAFOATE
     Indication: Cough
  291. FLUTICASONE PROPIONATE\SALMETEROL XINAFOATE [Suspect]
     Active Substance: FLUTICASONE PROPIONATE\SALMETEROL XINAFOATE
     Indication: Nasopharyngitis
  292. FLUTICASONE PROPIONATE\SALMETEROL XINAFOATE [Suspect]
     Active Substance: FLUTICASONE PROPIONATE\SALMETEROL XINAFOATE
     Indication: Product used for unknown indication
  293. FLUTICASONE PROPIONATE\SALMETEROL XINAFOATE [Suspect]
     Active Substance: FLUTICASONE PROPIONATE\SALMETEROL XINAFOATE
     Indication: Secretion discharge
  294. BISOPROLOL [Suspect]
     Active Substance: BISOPROLOL
     Indication: Product used for unknown indication
     Dosage: UNK, QD
     Route: 055
     Dates: start: 20201210
  295. CALCIUM CARBONATE [Suspect]
     Active Substance: CALCIUM CARBONATE
     Indication: Product used for unknown indication
  296. .ALPHA.-TOCOPHEROL ACETATE, DL- [Suspect]
     Active Substance: .ALPHA.-TOCOPHEROL ACETATE, DL-
     Indication: Product used for unknown indication
  297. IBUPROFEN [Suspect]
     Active Substance: IBUPROFEN
     Indication: Product used for unknown indication
  298. IBUPROFEN [Suspect]
     Active Substance: IBUPROFEN
  299. IBUPROFEN [Suspect]
     Active Substance: IBUPROFEN
     Route: 065
  300. IBUPROFEN [Suspect]
     Active Substance: IBUPROFEN
     Route: 065
  301. IBUPROFEN [Suspect]
     Active Substance: IBUPROFEN
  302. IBUPROFEN [Suspect]
     Active Substance: IBUPROFEN
  303. SALMETEROL [Suspect]
     Active Substance: SALMETEROL
     Indication: Nasopharyngitis
  304. SALMETEROL [Suspect]
     Active Substance: SALMETEROL
     Indication: Pneumothorax
  305. SALMETEROL [Suspect]
     Active Substance: SALMETEROL
     Indication: Pneumothorax
     Route: 065
  306. SALMETEROL [Suspect]
     Active Substance: SALMETEROL
     Indication: Secretion discharge
  307. SALMETEROL [Suspect]
     Active Substance: SALMETEROL
     Indication: Secretion discharge
  308. SALMETEROL [Suspect]
     Active Substance: SALMETEROL
     Indication: Dyspnoea
  309. SALMETEROL [Suspect]
     Active Substance: SALMETEROL
     Indication: Pneumothorax
  310. SALMETEROL [Suspect]
     Active Substance: SALMETEROL
     Indication: Secretion discharge
  311. SALMETEROL [Suspect]
     Active Substance: SALMETEROL
     Indication: Secretion discharge
  312. SALMETEROL [Suspect]
     Active Substance: SALMETEROL
     Indication: Product used for unknown indication
  313. CLOPIDOGREL BISULFATE [Suspect]
     Active Substance: CLOPIDOGREL BISULFATE
     Indication: Product used for unknown indication
  314. CLOPIDOGREL BISULFATE [Suspect]
     Active Substance: CLOPIDOGREL BISULFATE
  315. CLOPIDOGREL BISULFATE [Suspect]
     Active Substance: CLOPIDOGREL BISULFATE
     Route: 065
  316. IBUPROFEN [Suspect]
     Active Substance: IBUPROFEN
     Indication: Product used for unknown indication
  317. IBUPROFEN [Suspect]
     Active Substance: IBUPROFEN
  318. IBUPROFEN [Suspect]
     Active Substance: IBUPROFEN
  319. IBUPROFEN [Suspect]
     Active Substance: IBUPROFEN
  320. IBUPROFEN [Suspect]
     Active Substance: IBUPROFEN
     Route: 065
  321. IBUPROFEN [Suspect]
     Active Substance: IBUPROFEN
  322. MAGNESIUM ASPARTATE\POTASSIUM ASPARTATE [Suspect]
     Active Substance: MAGNESIUM ASPARTATE\POTASSIUM ASPARTATE
     Indication: Product used for unknown indication
  323. COLESEVELAM HYDROCHLORIDE [Suspect]
     Active Substance: COLESEVELAM HYDROCHLORIDE
     Indication: Product used for unknown indication
     Route: 065
  324. COLESEVELAM HYDROCHLORIDE [Suspect]
     Active Substance: COLESEVELAM HYDROCHLORIDE
     Route: 065
  325. PANTOTHENIC ACID [Suspect]
     Active Substance: PANTOTHENIC ACID
     Indication: Product used for unknown indication
     Route: 055
     Dates: start: 2018
  326. PANTOTHENIC ACID [Suspect]
     Active Substance: PANTOTHENIC ACID
  327. MAGNESIUM GLUCONATE [Suspect]
     Active Substance: MAGNESIUM GLUCONATE
     Indication: Product used for unknown indication
  328. MAGNESIUM GLUCONATE [Suspect]
     Active Substance: MAGNESIUM GLUCONATE
     Route: 065
  329. MAGNESIUM GLUCONATE [Suspect]
     Active Substance: MAGNESIUM GLUCONATE
  330. CLOPIDOGREL BISULFATE [Suspect]
     Active Substance: CLOPIDOGREL BISULFATE
     Indication: Product used for unknown indication
  331. MAGNESIUM OROTATE [Suspect]
     Active Substance: MAGNESIUM OROTATE
     Indication: Product used for unknown indication
     Dosage: UNK UNK, TID
  332. MAGNESIUM OROTATE [Suspect]
     Active Substance: MAGNESIUM OROTATE
     Route: 065
  333. MAGNESIUM OROTATE [Suspect]
     Active Substance: MAGNESIUM OROTATE
  334. .ALPHA.-TOCOPHEROL ACETATE [Suspect]
     Active Substance: .ALPHA.-TOCOPHEROL ACETATE
     Indication: Product used for unknown indication
  335. GINKGO [Suspect]
     Active Substance: GINKGO
     Indication: Product used for unknown indication
     Dosage: 1000 MG, BID
  336. GINKGO [Suspect]
     Active Substance: GINKGO
     Indication: Product used for unknown indication
  337. GINKGO [Suspect]
     Active Substance: GINKGO
     Dosage: NK, STRENGTH: 500) BID (1-0-1)BID
     Route: 065
  338. SOAP [Suspect]
     Active Substance: SOAP
     Indication: Dyspnoea
  339. SOAP [Suspect]
     Active Substance: SOAP
     Indication: Nasopharyngitis
  340. SOAP [Suspect]
     Active Substance: SOAP
     Indication: Bronchitis
  341. SOAP [Suspect]
     Active Substance: SOAP
     Indication: Asthma
  342. OLMESARTAN MEDOXOMIL [Suspect]
     Active Substance: OLMESARTAN MEDOXOMIL
     Indication: Product used for unknown indication
  343. OLMESARTAN MEDOXOMIL [Suspect]
     Active Substance: OLMESARTAN MEDOXOMIL
  344. OLMESARTAN MEDOXOMIL [Suspect]
     Active Substance: OLMESARTAN MEDOXOMIL
     Dosage: 1000 INTERNATIONAL UNIT, BID
  345. OLMESARTAN MEDOXOMIL [Suspect]
     Active Substance: OLMESARTAN MEDOXOMIL
     Route: 065
  346. OLMESARTAN MEDOXOMIL [Suspect]
     Active Substance: OLMESARTAN MEDOXOMIL
  347. FLUTICASONE PROPIONATE [Suspect]
     Active Substance: FLUTICASONE PROPIONATE
     Indication: Pneumothorax
  348. FLUTICASONE PROPIONATE [Suspect]
     Active Substance: FLUTICASONE PROPIONATE
     Indication: Secretion discharge
     Route: 065
  349. FLUTICASONE PROPIONATE [Suspect]
     Active Substance: FLUTICASONE PROPIONATE
     Indication: Cough
  350. FLUTICASONE PROPIONATE [Suspect]
     Active Substance: FLUTICASONE PROPIONATE
     Indication: Dyspnoea
  351. FLUTICASONE PROPIONATE [Suspect]
     Active Substance: FLUTICASONE PROPIONATE
     Indication: Dysphonia
  352. FLUTICASONE PROPIONATE [Suspect]
     Active Substance: FLUTICASONE PROPIONATE
     Indication: Nasopharyngitis
  353. FLUTICASONE PROPIONATE [Suspect]
     Active Substance: FLUTICASONE PROPIONATE
     Indication: Product used for unknown indication
  354. BISOPROLOL FUMARATE [Suspect]
     Active Substance: BISOPROLOL FUMARATE
     Indication: Product used for unknown indication
     Dosage: UNK, DAILY, QD (1-0-0)
     Route: 055
     Dates: start: 20201210
  355. BISOPROLOL FUMARATE [Suspect]
     Active Substance: BISOPROLOL FUMARATE
     Indication: Product used for unknown indication
     Route: 065
  356. BISOPROLOL FUMARATE [Suspect]
     Active Substance: BISOPROLOL FUMARATE
     Route: 055
     Dates: start: 2018, end: 20201210
  357. .ALPHA.-TOCOPHEROL ACETATE, DL- [Suspect]
     Active Substance: .ALPHA.-TOCOPHEROL ACETATE, DL-
     Indication: Product used for unknown indication
     Dosage: 1 DOSAGE FORM, QW
  358. .ALPHA.-TOCOPHEROL ACETATE, DL- [Suspect]
     Active Substance: .ALPHA.-TOCOPHEROL ACETATE, DL-
     Indication: Product used for unknown indication
     Dosage: 20000 IU, OW
  359. .ALPHA.-TOCOPHEROL ACETATE, DL- [Suspect]
     Active Substance: .ALPHA.-TOCOPHEROL ACETATE, DL-
     Dosage: 1 DOSAGE FORM, QW
     Route: 065
  360. MAGNESIUM ASPARTATE\POTASSIUM ASPARTATE [Suspect]
     Active Substance: MAGNESIUM ASPARTATE\POTASSIUM ASPARTATE
     Indication: Product used for unknown indication
     Route: 065
  361. ASPIRIN CALCIUM [Suspect]
     Active Substance: ASPIRIN CALCIUM
     Indication: Product used for unknown indication
     Route: 065
  362. GINKGO [Suspect]
     Active Substance: GINKGO
     Indication: Product used for unknown indication
     Dosage: UNK, STRENGTH: 500) BID (1-0-1)BID
     Route: 065
  363. GELATIN\POTASSIUM CHLORIDE\SODIUM CHLORIDE [Suspect]
     Active Substance: GELATIN\POTASSIUM CHLORIDE\SODIUM CHLORIDE
     Indication: Asthma
  364. GELATIN\POTASSIUM CHLORIDE\SODIUM CHLORIDE [Suspect]
     Active Substance: GELATIN\POTASSIUM CHLORIDE\SODIUM CHLORIDE
     Indication: Secretion discharge
  365. GELATIN\POTASSIUM CHLORIDE\SODIUM CHLORIDE [Suspect]
     Active Substance: GELATIN\POTASSIUM CHLORIDE\SODIUM CHLORIDE
     Indication: Cough
  366. GELATIN\POTASSIUM CHLORIDE\SODIUM CHLORIDE [Suspect]
     Active Substance: GELATIN\POTASSIUM CHLORIDE\SODIUM CHLORIDE
     Indication: Nasopharyngitis
  367. GELATIN\POTASSIUM CHLORIDE\SODIUM CHLORIDE [Suspect]
     Active Substance: GELATIN\POTASSIUM CHLORIDE\SODIUM CHLORIDE
     Indication: Bronchitis
  368. GELATIN\POTASSIUM CHLORIDE\SODIUM CHLORIDE [Suspect]
     Active Substance: GELATIN\POTASSIUM CHLORIDE\SODIUM CHLORIDE
     Indication: Dyspnoea
  369. GELATIN\POTASSIUM CHLORIDE\SODIUM CHLORIDE [Suspect]
     Active Substance: GELATIN\POTASSIUM CHLORIDE\SODIUM CHLORIDE
     Indication: Product used for unknown indication
  370. GELATIN\POTASSIUM CHLORIDE\SODIUM CHLORIDE [Suspect]
     Active Substance: GELATIN\POTASSIUM CHLORIDE\SODIUM CHLORIDE
     Indication: Pneumothorax
  371. GELATIN\POTASSIUM CHLORIDE\SODIUM CHLORIDE [Suspect]
     Active Substance: GELATIN\POTASSIUM CHLORIDE\SODIUM CHLORIDE
     Indication: Dysphonia
  372. GELATIN\POTASSIUM CHLORIDE\SODIUM CHLORIDE [Suspect]
     Active Substance: GELATIN\POTASSIUM CHLORIDE\SODIUM CHLORIDE
     Indication: Product used for unknown indication
  373. CALCIUM CARBONATE [Suspect]
     Active Substance: CALCIUM CARBONATE
     Indication: Product used for unknown indication
  374. CALCIUM CARBONATE [Suspect]
     Active Substance: CALCIUM CARBONATE
     Indication: Product used for unknown indication
  375. CALCIUM CARBONATE [Suspect]
     Active Substance: CALCIUM CARBONATE
     Route: 065
  376. CALCIUM CARBONATE [Suspect]
     Active Substance: CALCIUM CARBONATE
  377. SALMETEROL XINAFOATE [Suspect]
     Active Substance: SALMETEROL XINAFOATE
     Indication: Chest discomfort
  378. SALMETEROL XINAFOATE [Suspect]
     Active Substance: SALMETEROL XINAFOATE
     Indication: Cough
  379. SALMETEROL XINAFOATE [Suspect]
     Active Substance: SALMETEROL XINAFOATE
     Indication: Dyspnoea
  380. SALMETEROL XINAFOATE [Suspect]
     Active Substance: SALMETEROL XINAFOATE
     Indication: Secretion discharge
  381. SALMETEROL XINAFOATE [Suspect]
     Active Substance: SALMETEROL XINAFOATE
     Indication: Nasopharyngitis
  382. SALMETEROL XINAFOATE [Suspect]
     Active Substance: SALMETEROL XINAFOATE
     Indication: Dysphonia
  383. TAMSULOSIN HYDROCHLORIDE [Suspect]
     Active Substance: TAMSULOSIN HYDROCHLORIDE
     Indication: Product used for unknown indication
  384. POTASSIUM ASPARTATE [Suspect]
     Active Substance: POTASSIUM ASPARTATE
     Indication: Product used for unknown indication
  385. SOAP [Suspect]
     Active Substance: SOAP
     Indication: Bronchitis
  386. ALIROCUMAB [Suspect]
     Active Substance: ALIROCUMAB
     Indication: Product used for unknown indication
  387. GINKGO [Suspect]
     Active Substance: GINKGO
     Indication: Product used for unknown indication
     Dosage: 1000 MG, BID (INTERVAL: 1 DAY) (UNK, STRENGTH: 500); UNKNOWN
  388. FLUTICASONE [Suspect]
     Active Substance: FLUTICASONE
     Indication: Dysphonia
  389. AMBROXOL [Suspect]
     Active Substance: AMBROXOL
     Indication: Product used for unknown indication
  390. CLOPIDOGREL BESILATE [Suspect]
     Active Substance: CLOPIDOGREL BESILATE
     Indication: Product used for unknown indication
     Route: 065
     Dates: start: 20201210
  391. REPATHA [Suspect]
     Active Substance: EVOLOCUMAB
     Indication: Product used for unknown indication
  392. EUCALYPTUS OIL [Concomitant]
     Active Substance: EUCALYPTUS OIL
     Indication: Product used for unknown indication
  393. EUCALYPTUS OIL [Concomitant]
     Active Substance: EUCALYPTUS OIL
     Route: 065
  394. FOENICULUM VULGARE OIL [Concomitant]
     Indication: Product used for unknown indication
  395. HERBALS [Concomitant]
     Active Substance: HERBALS
     Indication: Product used for unknown indication
  396. HERBALS [Concomitant]
     Active Substance: HERBALS
  397. HERBALS [Concomitant]
     Active Substance: HERBALS
     Route: 065
  398. ILLICIUM VERUM OIL [Concomitant]
     Indication: Product used for unknown indication
  399. MENTHOL [Concomitant]
     Active Substance: MENTHOL
     Indication: Product used for unknown indication
  400. PIMPINELLA ANISUM OIL [Concomitant]
     Indication: Product used for unknown indication
  401. DIETARY SUPPLEMENT [Concomitant]
     Active Substance: DIETARY SUPPLEMENT
     Indication: Product used for unknown indication
  402. PREDNISOLONE [Concomitant]
     Active Substance: PREDNISOLONE
     Indication: Product used for unknown indication
     Route: 065
  403. PREDNISOLONE [Concomitant]
     Active Substance: PREDNISOLONE
     Indication: Product used for unknown indication
     Route: 065
  404. PREDNISOLONE [Concomitant]
     Active Substance: PREDNISOLONE
     Route: 065
  405. PREDNISOLONE [Concomitant]
     Active Substance: PREDNISOLONE
     Route: 065
  406. PREDNISOLONE [Concomitant]
     Active Substance: PREDNISOLONE
     Route: 065
  407. PREDNISOLONE [Concomitant]
     Active Substance: PREDNISOLONE
     Route: 065
  408. PREDNISOLONE [Concomitant]
     Active Substance: PREDNISOLONE
     Route: 065
  409. PREDNISOLONE [Concomitant]
     Active Substance: PREDNISOLONE
     Route: 065
  410. PREDNISOLONE [Concomitant]
     Active Substance: PREDNISOLONE
  411. PREDNISOLONE [Concomitant]
     Active Substance: PREDNISOLONE
  412. PREDNISOLONE [Concomitant]
     Active Substance: PREDNISOLONE
     Route: 065
  413. REPATHA [Concomitant]
     Active Substance: EVOLOCUMAB
     Indication: Product used for unknown indication
  414. REPATHA [Concomitant]
     Active Substance: EVOLOCUMAB
     Indication: Product used for unknown indication
  415. REPATHA [Concomitant]
     Active Substance: EVOLOCUMAB
  416. REPATHA [Concomitant]
     Active Substance: EVOLOCUMAB
     Dosage: 1 DF, OW
     Route: 065
  417. REPATHA [Concomitant]
     Active Substance: EVOLOCUMAB
     Route: 065
  418. REPATHA [Concomitant]
     Active Substance: EVOLOCUMAB
     Route: 065
  419. REPATHA [Concomitant]
     Active Substance: EVOLOCUMAB
  420. REPATHA [Concomitant]
     Active Substance: EVOLOCUMAB
  421. REPATHA [Concomitant]
     Active Substance: EVOLOCUMAB
     Route: 065
  422. REPATHA [Concomitant]
     Active Substance: EVOLOCUMAB
     Dosage: 1 DF, WE (1 DF, QW) (1 IN 1 WEEK)
  423. REPATHA [Concomitant]
     Active Substance: EVOLOCUMAB
     Dosage: 1 DF, WE (1 DF, QW)
  424. REPATHA [Concomitant]
     Active Substance: EVOLOCUMAB
  425. REPATHA [Concomitant]
     Active Substance: EVOLOCUMAB
     Dosage: 1 DF, WE (1 IN 1 WEEK)
  426. CHOLECALCIFEROL [Concomitant]
     Active Substance: CHOLECALCIFEROL
     Indication: Product used for unknown indication
     Route: 065
  427. CHOLECALCIFEROL [Concomitant]
     Active Substance: CHOLECALCIFEROL
     Route: 065
  428. CHOLECALCIFEROL [Concomitant]
     Active Substance: CHOLECALCIFEROL
     Dosage: 2000 IU, OW
     Route: 065
  429. MAGNESIUM ASPARTAT [Concomitant]
     Indication: Product used for unknown indication
  430. DIETARY SUPPLEMENT [Concomitant]
     Active Substance: DIETARY SUPPLEMENT
     Indication: Product used for unknown indication
     Route: 065
  431. DIETARY SUPPLEMENT [Concomitant]
     Active Substance: DIETARY SUPPLEMENT
     Indication: Product used for unknown indication
     Route: 065
  432. DIETARY SUPPLEMENT [Concomitant]
     Active Substance: DIETARY SUPPLEMENT
     Route: 065
  433. DIETARY SUPPLEMENT [Concomitant]
     Active Substance: DIETARY SUPPLEMENT
  434. CALCIUM CARBONATE [Concomitant]
     Active Substance: CALCIUM CARBONATE
     Indication: Product used for unknown indication
  435. CALCIUM CARBONATE [Concomitant]
     Active Substance: CALCIUM CARBONATE
     Indication: Product used for unknown indication
     Route: 065
  436. CALCIUM CARBONATE [Concomitant]
     Active Substance: CALCIUM CARBONATE
     Indication: Product used for unknown indication
     Route: 065
  437. CALCIUM CARBONATE [Concomitant]
     Active Substance: CALCIUM CARBONATE
  438. CALCIUM CARBONATE [Concomitant]
     Active Substance: CALCIUM CARBONATE
  439. CALCIUM CARBONATE [Concomitant]
     Active Substance: CALCIUM CARBONATE
     Route: 065
  440. BISOPROLOL FUMARATE [Concomitant]
     Active Substance: BISOPROLOL FUMARATE
     Indication: Product used for unknown indication
     Route: 065
  441. SALMETEROL XINAFOATE [Concomitant]
     Active Substance: SALMETEROL XINAFOATE
     Indication: Product used for unknown indication
     Route: 048
     Dates: start: 2018, end: 2018
  442. FLUTICASONE PROPIONATE\SALMETEROL XINAFOATE [Concomitant]
     Active Substance: FLUTICASONE PROPIONATE\SALMETEROL XINAFOATE
     Indication: Dysphonia
  443. FLUTICASONE PROPIONATE\SALMETEROL XINAFOATE [Concomitant]
     Active Substance: FLUTICASONE PROPIONATE\SALMETEROL XINAFOATE
     Indication: Cough
     Route: 055
     Dates: start: 2018, end: 2018
  444. FLUTICASONE PROPIONATE\SALMETEROL XINAFOATE [Concomitant]
     Active Substance: FLUTICASONE PROPIONATE\SALMETEROL XINAFOATE
     Indication: Secretion discharge
  445. FLUTICASONE PROPIONATE\SALMETEROL XINAFOATE [Concomitant]
     Active Substance: FLUTICASONE PROPIONATE\SALMETEROL XINAFOATE
     Indication: Dyspnoea
  446. FLUTICASONE PROPIONATE\SALMETEROL XINAFOATE [Concomitant]
     Active Substance: FLUTICASONE PROPIONATE\SALMETEROL XINAFOATE
     Indication: Pneumothorax
  447. FLUTICASONE PROPIONATE\SALMETEROL XINAFOATE [Concomitant]
     Active Substance: FLUTICASONE PROPIONATE\SALMETEROL XINAFOATE
     Indication: Nasopharyngitis
  448. FLUTICASONE PROPIONATE\SALMETEROL XINAFOATE [Concomitant]
     Active Substance: FLUTICASONE PROPIONATE\SALMETEROL XINAFOATE
     Indication: Dysphonia
  449. FLUTICASONE PROPIONATE\SALMETEROL XINAFOATE [Concomitant]
     Active Substance: FLUTICASONE PROPIONATE\SALMETEROL XINAFOATE
     Indication: Pneumothorax
  450. FLUTICASONE PROPIONATE\SALMETEROL XINAFOATE [Concomitant]
     Active Substance: FLUTICASONE PROPIONATE\SALMETEROL XINAFOATE
     Indication: Nasopharyngitis
  451. FLUTICASONE PROPIONATE\SALMETEROL XINAFOATE [Concomitant]
     Active Substance: FLUTICASONE PROPIONATE\SALMETEROL XINAFOATE
     Indication: Secretion discharge
  452. FLUTICASONE PROPIONATE\SALMETEROL XINAFOATE [Concomitant]
     Active Substance: FLUTICASONE PROPIONATE\SALMETEROL XINAFOATE
     Indication: Dyspnoea
  453. EVOLOCUMAB [Concomitant]
     Active Substance: EVOLOCUMAB
     Indication: Product used for unknown indication
  454. EVOLOCUMAB [Concomitant]
     Active Substance: EVOLOCUMAB
     Indication: Product used for unknown indication
  455. EVOLOCUMAB [Concomitant]
     Active Substance: EVOLOCUMAB
     Route: 065
  456. EVOLOCUMAB [Concomitant]
     Active Substance: EVOLOCUMAB
     Route: 065
  457. EVOLOCUMAB [Concomitant]
     Active Substance: EVOLOCUMAB
     Route: 065
  458. EVOLOCUMAB [Concomitant]
     Active Substance: EVOLOCUMAB
  459. EVOLOCUMAB [Concomitant]
     Active Substance: EVOLOCUMAB
     Route: 065
  460. EVOLOCUMAB [Concomitant]
     Active Substance: EVOLOCUMAB
  461. EVOLOCUMAB [Concomitant]
     Active Substance: EVOLOCUMAB
     Route: 065
  462. DICLOFENAC EPOLAMINE [Concomitant]
     Active Substance: DICLOFENAC EPOLAMINE
     Indication: Product used for unknown indication
  463. OLMESARTAN MEDOXOMIL [Concomitant]
     Active Substance: OLMESARTAN MEDOXOMIL
     Indication: Product used for unknown indication
     Route: 065
  464. OLMESARTAN MEDOXOMIL [Concomitant]
     Active Substance: OLMESARTAN MEDOXOMIL
     Indication: Product used for unknown indication
     Route: 065
  465. OLMESARTAN MEDOXOMIL [Concomitant]
     Active Substance: OLMESARTAN MEDOXOMIL
     Route: 065
  466. OLMESARTAN MEDOXOMIL [Concomitant]
     Active Substance: OLMESARTAN MEDOXOMIL
  467. OLMESARTAN MEDOXOMIL [Concomitant]
     Active Substance: OLMESARTAN MEDOXOMIL
  468. OLMESARTAN MEDOXOMIL [Concomitant]
     Active Substance: OLMESARTAN MEDOXOMIL
     Dosage: 500 IU, Q12H
     Route: 065
  469. VITAMIN D NOS [Concomitant]
     Active Substance: CHOLECALCIFEROL\ERGOCALCIFEROL
     Indication: Product used for unknown indication
     Route: 065
  470. PEPPERMINT OIL [Concomitant]
     Active Substance: PEPPERMINT OIL
     Indication: Product used for unknown indication
  471. PEPPERMINT OIL [Concomitant]
     Active Substance: PEPPERMINT OIL
     Route: 065
  472. SALVIATHYMOL N [CINNAMOMUM VERUM BARK OIL;EUCALYPTUS GLOBULUS OIL;FOEN [Concomitant]
     Indication: Bronchitis
     Dosage: 10 GTT DROPS, QD
  473. SALVIATHYMOL N [CINNAMOMUM VERUM BARK OIL;EUCALYPTUS GLOBULUS OIL;FOEN [Concomitant]
     Indication: Asthma
  474. FLUTICASONE PROPIONATE\SALMETEROL XINAFOATE [Concomitant]
     Active Substance: FLUTICASONE PROPIONATE\SALMETEROL XINAFOATE
     Indication: Cough
  475. FLUTICASONE PROPIONATE\SALMETEROL XINAFOATE [Concomitant]
     Active Substance: FLUTICASONE PROPIONATE\SALMETEROL XINAFOATE
     Indication: Secretion discharge
  476. FLUTICASONE PROPIONATE\SALMETEROL XINAFOATE [Concomitant]
     Active Substance: FLUTICASONE PROPIONATE\SALMETEROL XINAFOATE
     Indication: Pneumothorax
  477. FLUTICASONE PROPIONATE\SALMETEROL XINAFOATE [Concomitant]
     Active Substance: FLUTICASONE PROPIONATE\SALMETEROL XINAFOATE
     Indication: Dyspnoea
  478. FLUTICASONE PROPIONATE\SALMETEROL XINAFOATE [Concomitant]
     Active Substance: FLUTICASONE PROPIONATE\SALMETEROL XINAFOATE
     Indication: Nasopharyngitis
  479. FLUTICASONE PROPIONATE\SALMETEROL XINAFOATE [Concomitant]
     Active Substance: FLUTICASONE PROPIONATE\SALMETEROL XINAFOATE
     Indication: Dysphonia

REACTIONS (30)
  - Plantar fasciitis [Unknown]
  - Nasopharyngitis [Unknown]
  - Coronary artery disease [Unknown]
  - Atrial fibrillation [Recovered/Resolved]
  - Dysphonia [Not Recovered/Not Resolved]
  - Cough [Not Recovered/Not Resolved]
  - Muscle spasms [Unknown]
  - Dyspnoea [Unknown]
  - Cardiac disorder [Unknown]
  - Wheezing [Unknown]
  - Fractional exhaled nitric oxide increased [Recovered/Resolved]
  - Secretion discharge [Unknown]
  - Obstructive airways disorder [Unknown]
  - Sensation of foreign body [Unknown]
  - Eosinophilia [Unknown]
  - Dyspnoea exertional [Unknown]
  - Obstructive sleep apnoea syndrome [Unknown]
  - Chest discomfort [Recovered/Resolved]
  - Pneumothorax [Not Recovered/Not Resolved]
  - Exostosis [Unknown]
  - Dysphonia [Not Recovered/Not Resolved]
  - Exostosis [Unknown]
  - Increased upper airway secretion [Unknown]
  - Cardiac disorder [Unknown]
  - Foreign body in throat [Unknown]
  - Bronchospasm [Unknown]
  - Myoglobin blood increased [Unknown]
  - Brain natriuretic peptide increased [Unknown]
  - Sensation of foreign body [Unknown]
  - Coronary artery disease [Unknown]

NARRATIVE: CASE EVENT DATE: 20180101
